FAERS Safety Report 6722193-3 (Version None)
Quarter: 2010Q2

REPORT INFORMATION
  Report Type: 
  Country: None (occurrence: None)
  Receive Date: 20100512
  Receipt Date: 20100505
  Transmission Date: 20101027
  Serious: Yes (Hospitalization)
  Sender: FDA-Public Use
  Company Number: US-MERCK-1004USA00040

PATIENT
  Age: 83 Year
  Sex: Female
  Weight: 58 kg

DRUGS (4)
  1. SINGULAIR [Suspect]
     Indication: CHRONIC OBSTRUCTIVE PULMONARY DISEASE
     Route: 048
     Dates: start: 20090101
  2. AMBIEN [Concomitant]
     Route: 065
  3. RIFABUTIN [Suspect]
     Route: 065
  4. BIAXIN [Suspect]
     Route: 065

REACTIONS (13)
  - COUGH [None]
  - DYSPNOEA [None]
  - HYPOXIA [None]
  - INSOMNIA [None]
  - LEUKOPENIA [None]
  - LUNG INFECTION [None]
  - OEDEMA PERIPHERAL [None]
  - OFF LABEL USE [None]
  - PANCYTOPENIA [None]
  - PYREXIA [None]
  - RED BLOOD CELL ABNORMALITY [None]
  - THERAPEUTIC RESPONSE UNEXPECTED [None]
  - WHITE BLOOD CELL DISORDER [None]
